FAERS Safety Report 7090708-4 (Version None)
Quarter: 2010Q4

REPORT INFORMATION
  Report Type: 
  Country: None (occurrence: None)
  Receive Date: 20101109
  Receipt Date: 20090408
  Transmission Date: 20110411
  Serious: No
  Sender: FDA-Public Use
  Company Number: US-KINGPHARMUSA00001-K200900404

PATIENT
  Sex: Female
  Weight: 72.562 kg

DRUGS (5)
  1. FLECTOR [Suspect]
     Indication: OSTEOARTHRITIS
     Dosage: 1 PATCH, Q 12-15 HOURS QD
     Route: 061
     Dates: start: 20081101, end: 20081128
  2. FLECTOR [Suspect]
     Indication: BURSITIS
  3. NEURONTIN [Concomitant]
     Indication: PERIPHERAL VASCULAR DISORDER
     Dosage: 400 MG, BID
     Route: 048
  4. NEURONTIN [Concomitant]
     Indication: NEUROPATHY PERIPHERAL
  5. ANTIHYPERTENSIVES [Concomitant]
     Indication: HYPERTENSION
     Dosage: UNK
     Route: 048

REACTIONS (4)
  - APPLICATION SITE DRYNESS [None]
  - BURNING SENSATION [None]
  - GAIT DISTURBANCE [None]
  - PAIN IN EXTREMITY [None]
